FAERS Safety Report 25140590 (Version 1)
Quarter: 2025Q1

REPORT INFORMATION
  Report Type: Spontaneous
  Country: CZ (occurrence: CZ)
  Receive Date: 20250331
  Receipt Date: 20250331
  Transmission Date: 20250409
  Serious: Yes (Other)
  Sender: GILEAD
  Company Number: CZ-GILEAD-2025-0708884

PATIENT
  Age: 44 Year
  Sex: Female

DRUGS (3)
  1. TRODELVY [Suspect]
     Active Substance: SACITUZUMAB GOVITECAN-HZIY
     Indication: Triple negative breast cancer
     Route: 065
     Dates: start: 202405
  2. TRODELVY [Suspect]
     Active Substance: SACITUZUMAB GOVITECAN-HZIY
     Indication: Breast cancer
     Route: 065
     Dates: start: 202503
  3. DENOSUMAB [Concomitant]
     Active Substance: DENOSUMAB

REACTIONS (5)
  - Metastases to liver [Unknown]
  - Disease progression [Unknown]
  - Neutropenia [Unknown]
  - Abdominal pain [Unknown]
  - Diarrhoea [Unknown]

NARRATIVE: CASE EVENT DATE: 20250301
